FAERS Safety Report 25542526 (Version 1)
Quarter: 2025Q3

REPORT INFORMATION
  Report Type: Spontaneous
  Country: EU (occurrence: EU)
  Receive Date: 20250711
  Receipt Date: 20250711
  Transmission Date: 20251020
  Serious: Yes (Other)
  Sender: NOVITIUM PHARMA
  Company Number: EU-NOVITIUMPHARMA-2025ESNVP01560

PATIENT
  Age: 50 Year
  Sex: Male

DRUGS (8)
  1. PREDNISONE [Suspect]
     Active Substance: PREDNISONE
     Indication: Acute febrile neutrophilic dermatosis
  2. PREDNISONE [Suspect]
     Active Substance: PREDNISONE
     Indication: Acute febrile neutrophilic dermatosis
  3. PREDNISONE [Suspect]
     Active Substance: PREDNISONE
     Dates: start: 202304
  4. DAPSONE [Suspect]
     Active Substance: DAPSONE
     Indication: Acute febrile neutrophilic dermatosis
  5. DAPSONE [Suspect]
     Active Substance: DAPSONE
     Indication: Acute febrile neutrophilic dermatosis
  6. COLCHICINE [Concomitant]
     Active Substance: COLCHICINE
  7. METHOTREXATE [Concomitant]
     Active Substance: METHOTREXATE
     Dates: start: 202304
  8. ADALIMUMAB [Concomitant]
     Active Substance: ADALIMUMAB
     Dates: start: 20230705

REACTIONS (2)
  - Central serous chorioretinopathy [Unknown]
  - Anaemia [Recovering/Resolving]
